FAERS Safety Report 23752914 (Version 1)
Quarter: 2024Q2

REPORT INFORMATION
  Report Type: Spontaneous
  Country: CA (occurrence: None)
  Receive Date: 20240417
  Receipt Date: 20240417
  Transmission Date: 20240715
  Serious: Yes (Other)
  Sender: FDA-Public Use
  Company Number: 2024A090580

PATIENT
  Age: 18 Year
  Sex: Female
  Weight: 72 kg

DRUGS (16)
  1. QUETIAPINE FUMARATE [Suspect]
     Active Substance: QUETIAPINE FUMARATE
  2. ETOPOSIDE [Suspect]
     Active Substance: ETOPOSIDE
     Indication: Acute lymphocytic leukaemia
  3. CYTARABINE [Suspect]
     Active Substance: CYTARABINE
     Indication: Acute lymphocytic leukaemia
  4. DEXAMETHASONE [Suspect]
     Active Substance: DEXAMETHASONE
     Indication: Acute lymphocytic leukaemia
  5. ASPARAGINASE [Suspect]
     Active Substance: ASPARAGINASE
     Indication: Acute lymphocytic leukaemia
     Dosage: POWDER FOR SOLUTION FOR INTRAMUSCULAR
  6. METHOTREXATE SODIUM [Suspect]
     Active Substance: METHOTREXATE SODIUM
     Indication: Acute lymphocytic leukaemia
  7. DEXAMETHASONE [Concomitant]
     Active Substance: DEXAMETHASONE
     Dosage: DROPS OPHTHALIMIC
  8. DIMENHYDRINATE [Concomitant]
     Active Substance: DIMENHYDRINATE
  9. DIPHENHYDRAMINE [Concomitant]
     Active Substance: DIPHENHYDRAMINE
  10. FAMOTIDINE [Concomitant]
     Active Substance: FAMOTIDINE
  11. FILGRASTIM [Concomitant]
     Active Substance: FILGRASTIM
  12. GRANISETRON [Concomitant]
     Active Substance: GRANISETRON
  13. LANSOPRAZOLE [Concomitant]
     Active Substance: LANSOPRAZOLE
  14. LORAZEPAM [Concomitant]
     Active Substance: LORAZEPAM
  15. PREGABALIN [Concomitant]
     Active Substance: PREGABALIN
  16. SULFAMETHOXAZOLE\TRIMETHOPRIM [Concomitant]
     Active Substance: SULFAMETHOXAZOLE\TRIMETHOPRIM

REACTIONS (2)
  - Febrile neutropenia [Recovered/Resolved]
  - Pharyngeal inflammation [Recovered/Resolved]
